FAERS Safety Report 5104603-0 (Version None)
Quarter: 2006Q3

REPORT INFORMATION
  Report Type: 
  Country: None (occurrence: None)
  Receive Date: 20060914
  Receipt Date: 20060428
  Transmission Date: 20061208
  Serious: No
  Sender: FDA-Public Use
  Company Number: US-BRISTOL-MYERS SQUIBB COMPANY-13360425

PATIENT
  Sex: Male
  Weight: 83 kg

DRUGS (5)
  1. BUSPAR [Suspect]
     Indication: ANXIETY
     Route: 048
     Dates: end: 20060427
  2. VASOTEC [Concomitant]
     Dosage: DURATION 10-12 YEARS
  3. LIPITOR [Concomitant]
  4. VALIUM [Concomitant]
  5. LEXAPRO [Concomitant]

REACTIONS (4)
  - DYSARTHRIA [None]
  - DYSKINESIA [None]
  - HYPERHIDROSIS [None]
  - SOMNOLENCE [None]
